FAERS Safety Report 9492913 (Version 2)
Quarter: 2013Q3

REPORT INFORMATION
  Report Type: Spontaneous
  Country: FR (occurrence: FR)
  Receive Date: 20130902
  Receipt Date: 20130902
  Transmission Date: 20140515
  Serious: Yes (Other)
  Sender: FDA-Public Use
  Company Number: FR-AMGEN-FRASP2013050285

PATIENT
  Age: 4 Year
  Sex: Female
  Weight: 16.7 kg

DRUGS (1)
  1. ENBREL [Suspect]
     Indication: JUVENILE IDIOPATHIC ARTHRITIS
     Dosage: 10 MG, QWK
     Route: 058
     Dates: start: 201103

REACTIONS (2)
  - Keratitis [Not Recovered/Not Resolved]
  - Dry eye [Not Recovered/Not Resolved]
